FAERS Safety Report 8583378-7 (Version None)
Quarter: 2012Q3

REPORT INFORMATION
  Report Type: 
  Country: None (occurrence: None)
  Receive Date: 20120809
  Receipt Date: 20120727
  Transmission Date: 20120928
  Serious: Yes (Disabling, Other)
  Sender: FDA-Public Use
  Company Number: GB-WATSON-2012-12342

PATIENT
  Age: 62 Year
  Sex: Female
  Weight: 65.5 kg

DRUGS (5)
  1. GLUCOSAMIN CHONDROITIN             /01430901/ [Concomitant]
     Indication: ARTHRITIS
     Dosage: 500MG AND 400MG ONGOING
     Route: 048
  2. ZOPICLONE [Concomitant]
     Indication: SLEEP DISORDER
     Dosage: 1.875 MG, UNKNOWN
     Route: 048
     Dates: start: 20090625
  3. CITALOPRAM HYDROBROMIDE [Suspect]
     Indication: DEPRESSION
     Dosage: 20 MG, UNKNOWN
     Route: 048
     Dates: start: 20090411
  4. DICLOFENAC SODIUM [Concomitant]
     Indication: ARTHRITIS
     Dosage: 50 MG, UNKNOWN, TAKEN ABOUT 5 TIMES SINCE START DATE.
     Route: 048
     Dates: start: 20090401
  5. ACETAMINOPHEN [Concomitant]
     Indication: ARTHRALGIA
     Dosage: 500 MG, BID, ONGOING
     Route: 048

REACTIONS (5)
  - NAIL GROWTH ABNORMAL [None]
  - AMNESIA [None]
  - NAIL RIDGING [None]
  - ONYCHOCLASIS [None]
  - NAIL DISORDER [None]
